FAERS Safety Report 23143971 (Version 1)
Quarter: 2023Q4

REPORT INFORMATION
  Report Type: Spontaneous
  Country: FR (occurrence: FR)
  Receive Date: 20231103
  Receipt Date: 20231103
  Transmission Date: 20240110
  Serious: Yes (Death, Other)
  Sender: FDA-Public Use
  Company Number: FR-AMGEN-FRASP2023191858

PATIENT

DRUGS (4)
  1. BEVACIZUMAB [Suspect]
     Active Substance: BEVACIZUMAB
     Indication: Endometrial cancer recurrent
     Dosage: UNK
     Route: 065
  2. BEVACIZUMAB [Suspect]
     Active Substance: BEVACIZUMAB
     Indication: Off label use
  3. DOSTARLIMAB [Suspect]
     Active Substance: DOSTARLIMAB
     Indication: Endometrial cancer recurrent
     Dosage: 500 MILLIGRAM, Q3WK (FOR 4 CYCLES)
     Route: 065
  4. DOSTARLIMAB [Suspect]
     Active Substance: DOSTARLIMAB
     Dosage: 1000 MILLIGRAM, Q6WK
     Route: 065

REACTIONS (31)
  - Death [Fatal]
  - Cardiac arrest [Fatal]
  - Respiratory distress [Fatal]
  - General physical health deterioration [Fatal]
  - Endometrial cancer recurrent [Fatal]
  - Subileus [Fatal]
  - Toxic skin eruption [Unknown]
  - Papilloedema [Unknown]
  - Urticaria [Unknown]
  - Drug eruption [Unknown]
  - Pruritus [Unknown]
  - Thyroid disorder [Unknown]
  - Lung disorder [Unknown]
  - Hot flush [Unknown]
  - Night sweats [Unknown]
  - COVID-19 [Unknown]
  - Haemoglobin abnormal [Unknown]
  - Platelet count abnormal [Unknown]
  - Neutrophil count abnormal [Unknown]
  - Blood creatinine abnormal [Unknown]
  - Chills [Unknown]
  - Influenza like illness [Unknown]
  - Hyperglycaemia [Unknown]
  - Arthralgia [Unknown]
  - Diarrhoea [Unknown]
  - Asthenia [Unknown]
  - Myalgia [Unknown]
  - Decreased appetite [Unknown]
  - Nausea [Unknown]
  - Dyspnoea [Unknown]
  - Off label use [Unknown]
